FAERS Safety Report 5214472-6 (Version None)
Quarter: 2007Q1

REPORT INFORMATION
  Report Type: 
  Country: None (occurrence: None)
  Receive Date: 20070119
  Receipt Date: 20070119
  Transmission Date: 20070707
  Serious: No
  Sender: FDA-Public Use
  Company Number: None

PATIENT
  Sex: Female
  Weight: 64.1 kg

DRUGS (2)
  1. PHENYTOIN [Suspect]
     Indication: CONVULSION PROPHYLAXIS
     Dosage: 100 MG DAILY ORAL
     Route: 048
     Dates: start: 20061110, end: 20061130
  2. KEPPRA [Concomitant]

REACTIONS (1)
  - LYMPHADENOPATHY [None]
